FAERS Safety Report 13432733 (Version 1)
Quarter: 2017Q2

REPORT INFORMATION
  Report Type: Spontaneous
  Country: GR (occurrence: GR)
  Receive Date: 20170412
  Receipt Date: 20170412
  Transmission Date: 20170830
  Serious: Yes (Death, Other)
  Sender: FDA-Public Use
  Company Number: GR-GLAXOSMITHKLINE-GR2017GSK026504

PATIENT
  Age: 88 Year
  Sex: Male

DRUGS (4)
  1. PANTIUM [Concomitant]
     Indication: PROPHYLAXIS
     Dosage: UNK
  2. PLAVIX [Concomitant]
     Active Substance: CLOPIDOGREL BISULFATE
     Indication: CARDIOVASCULAR DISORDER
     Dosage: UNK
  3. CENTRAC [Concomitant]
     Indication: PRODUCT USED FOR UNKNOWN INDICATION
     Dosage: UNK
  4. DUODART [Suspect]
     Active Substance: DUTASTERIDE\TAMSULOSIN
     Indication: BENIGN PROSTATIC HYPERPLASIA
     Dosage: UNK

REACTIONS (3)
  - Hydrocele [Not Recovered/Not Resolved]
  - Cerebrovascular accident [Fatal]
  - Pain [Not Recovered/Not Resolved]
